FAERS Safety Report 9310194 (Version 1)
Quarter: 2013Q2

REPORT INFORMATION
  Report Type: Spontaneous
  Country: US (occurrence: US)
  Receive Date: 20130527
  Receipt Date: 20130527
  Transmission Date: 20140414
  Serious: No
  Sender: FDA-Public Use
  Company Number: US-009507513-1305USA013502

PATIENT
  Age: 48 Year
  Sex: Female

DRUGS (2)
  1. PROVENTIL [Suspect]
     Indication: ASTHMA
     Dosage: UNK
     Route: 055
     Dates: start: 199405
  2. ADVAIR [Concomitant]

REACTIONS (4)
  - Hypersensitivity [Unknown]
  - Chest discomfort [Not Recovered/Not Resolved]
  - Expired drug administered [Unknown]
  - Product quality issue [Unknown]
